FAERS Safety Report 8375371 (Version 2)
Quarter: 2013Q2

REPORT INFORMATION
  Report Type: Spontaneous
  Country: US (occurrence: None)
  Receive Date: 20111221
  Receipt Date: 20121227
  Transmission Date: 20140414
  Serious: Yes (Hospitalization)
  Sender: FDA-Public Use
  Company Number: PHEH2011US06824

PATIENT
  Age: 34 Year
  Sex: Female
  Weight: 68.9 kg

DRUGS (8)
  1. EXJADE [Suspect]
     Indication: SICKLE CELL ANAEMIA
     Route: 048
     Dates: start: 20071009
  2. HYDREA (HYDROXYCARBAMIDE) [Concomitant]
  3. LISINOPRIL (LISINOPRIL) [Concomitant]
  4. VITAMIN D (ERGOCALCIFEROL) [Concomitant]
  5. PEPCID (FAMOTIDINE) [Concomitant]
  6. FOLIC ACID (FOLIC ACID) [Concomitant]
  7. VICODIN (HYDROCODONE BITARTRATE, PARACETAMOL) [Concomitant]
  8. DILAUDID (HYDROMORPHONE HYDROCHLORIDE) [Concomitant]

REACTIONS (1)
  - SICKLE CELL ANAEMIA WITH CRISIS [None]
